FAERS Safety Report 7009086-1 (Version None)
Quarter: 2010Q3

REPORT INFORMATION
  Report Type: 
  Country: None (occurrence: None)
  Receive Date: 20100923
  Receipt Date: 20100913
  Transmission Date: 20110219
  Serious: Yes (Hospitalization)
  Sender: FDA-Public Use
  Company Number: CA-JNJFOC-20100904862

PATIENT
  Sex: Female
  Weight: 77 kg

DRUGS (24)
  1. REMICADE [Suspect]
     Indication: RHEUMATOID ARTHRITIS
     Route: 042
  2. ESTRACE [Concomitant]
     Indication: HORMONE THERAPY
     Route: 048
  3. TERAZOL 1 [Concomitant]
     Indication: VAGINAL INFECTION
     Dosage: DOSE= ^0.47^
     Route: 061
  4. METHOTREXATE [Concomitant]
     Indication: RHEUMATOID ARTHRITIS
     Route: 048
  5. MEDROXYPROGESTERONE [Concomitant]
     Indication: CONTRACEPTION
     Route: 048
  6. CYCLOBENZAPRINE [Concomitant]
     Indication: FEELING OF RELAXATION
     Route: 048
  7. PANTOPRAZOLE [Concomitant]
     Indication: DYSPEPSIA
     Route: 048
  8. DIVALPROEX SODIUM [Concomitant]
  9. OXAZEPAM [Concomitant]
     Indication: SLEEP DISORDER THERAPY
  10. COLACE [Concomitant]
     Indication: CONSTIPATION
     Dosage: DOSE= ^2 A DAY AS NECESSARY^
  11. CLONAZEPAM [Concomitant]
     Indication: ANXIETY
  12. NOVOSEMIDE [Concomitant]
     Indication: DIURETIC THERAPY
  13. EMTEC 30 [Concomitant]
     Indication: ARTHRALGIA
     Dosage: ^1 Q4TH PRN^
  14. LIPITOR [Concomitant]
     Indication: BLOOD CHOLESTEROL
  15. LACTULOSE [Concomitant]
     Indication: CONSTIPATION
  16. ACETAMINOPHEN [Concomitant]
     Indication: PAIN
     Dosage: ^ 1 Q 4H PRN^
  17. SALBUTAMOL [Concomitant]
     Dosage: ^2 INH QID PRN^
  18. EFFEXOR [Concomitant]
     Indication: DEPRESSION
  19. FOLIC ACID [Concomitant]
     Indication: PROPHYLAXIS
  20. AMITRIPTYLINE HCL [Concomitant]
     Indication: DEPRESSION
     Dosage: ^1-2 HS^
  21. CARBOCAL D [Concomitant]
  22. CELEBREX [Concomitant]
     Indication: RHEUMATOID ARTHRITIS
  23. HYDROXYCHLOROQUINE [Concomitant]
     Indication: RHEUMATOID ARTHRITIS
  24. RISPERIDONE [Concomitant]

REACTIONS (1)
  - CHEST DISCOMFORT [None]
